FAERS Safety Report 12052394 (Version 1)
Quarter: 2016Q1

REPORT INFORMATION
  Report Type: Spontaneous
  Country: US (occurrence: US)
  Receive Date: 20160209
  Receipt Date: 20160209
  Transmission Date: 20160526
  Serious: No
  Sender: FDA-Public Use
  Company Number: US-ENDO PHARMACEUTICALS INC.-2015-002679

PATIENT
  Sex: Female
  Weight: 62.2 kg

DRUGS (2)
  1. ALBUTEROL SULFATE SYRUP [Suspect]
     Active Substance: ALBUTEROL SULFATE
     Dosage: 1/4 TEASPOON EVERY OTHER DAY AS NECESSARY
     Route: 048
  2. ALBUTEROL SULFATE SYRUP [Suspect]
     Active Substance: ALBUTEROL SULFATE
     Indication: ASTHMA
     Route: 048
     Dates: start: 2013

REACTIONS (9)
  - Incorrect dose administered [Unknown]
  - Muscle spasms [Unknown]
  - Heart rate increased [Unknown]
  - Dyspepsia [Unknown]
  - Nausea [Unknown]
  - Inappropriate schedule of drug administration [Unknown]
  - Colitis [Unknown]
  - Hernia [Unknown]
  - Hypertension [Unknown]

NARRATIVE: CASE EVENT DATE: 2013
